FAERS Safety Report 7761719-8 (Version None)
Quarter: 2011Q3

REPORT INFORMATION
  Report Type: 
  Country: None (occurrence: None)
  Receive Date: 20110920
  Receipt Date: 20110912
  Transmission Date: 20111222
  Serious: Yes (Hospitalization)
  Sender: FDA-Public Use
  Company Number: PHHY2010US15639

PATIENT
  Sex: Female

DRUGS (2)
  1. PULMOZYME [Concomitant]
  2. TOBI [Suspect]
     Indication: CYSTIC FIBROSIS
     Dosage: 300 MG, TWICE DAILY EVERY OTHER MONTH
     Dates: start: 20090224

REACTIONS (4)
  - EAR INFECTION [None]
  - RHINITIS [None]
  - PHARYNGITIS [None]
  - UPPER RESPIRATORY TRACT INFECTION [None]
